FAERS Safety Report 16853272 (Version 3)
Quarter: 2020Q4

REPORT INFORMATION
  Report Type: Report from Study
  Country: US (occurrence: US)
  Receive Date: 20190925
  Receipt Date: 20201019
  Transmission Date: 20210113
  Serious: Yes (Hospitalization, Other)
  Sender: FDA-Public Use
  Company Number: US-GILEAD-2019-0417248

PATIENT
  Age: 76 Year
  Sex: Female
  Weight: 68.7 kg

DRUGS (17)
  1. CYCLOPHOSPHAMIDE. [Suspect]
     Active Substance: CYCLOPHOSPHAMIDE
     Indication: BONE MARROW CONDITIONING REGIMEN
     Dosage: 500 MG/M2
     Route: 042
     Dates: start: 20181207, end: 20181209
  2. CLOTRIMAZOLE. [Concomitant]
     Active Substance: CLOTRIMAZOLE
     Dosage: 10,MG,THREE TIMES DAILY
     Route: 048
     Dates: start: 20181220
  3. AXICABTAGENE CILOLEUCEL [Suspect]
     Active Substance: AXICABTAGENE CILOLEUCEL
     Indication: MARGINAL ZONE LYMPHOMA
     Dosage: UNK
     Route: 042
     Dates: start: 20181212, end: 20181212
  4. CALCIUM CARBONATE/VITAMIN D3 [Concomitant]
     Active Substance: CALCIUM CARBONATE\CHOLECALCIFEROL
     Dosage: 1,OTHER,AS NECESSARY
     Route: 048
     Dates: start: 20100811
  5. EPINEPHRINE. [Concomitant]
     Active Substance: EPINEPHRINE
     Dosage: 0.3,MG,AS NECESSARY
     Route: 030
     Dates: start: 20160714
  6. ACYCLOVIR [ACICLOVIR] [Concomitant]
     Active Substance: ACYCLOVIR
     Dosage: 400,MG,THREE TIMES DAILY
     Route: 048
     Dates: start: 20181211
  7. INSULIN DETEMIR [Concomitant]
     Active Substance: INSULIN DETEMIR
     Dosage: 3,ML,DAILY
     Route: 058
     Dates: start: 20190102
  8. NYSTATIN. [Concomitant]
     Active Substance: NYSTATIN
     Dosage: 5,ML,FOUR TIMES DAILY
     Route: 048
     Dates: start: 20190103, end: 20190829
  9. FLUDARABINE [Suspect]
     Active Substance: FLUDARABINE PHOSPHATE
     Indication: BONE MARROW CONDITIONING REGIMEN
     Dosage: 30 MG/M2
     Route: 042
     Dates: start: 20181207, end: 20181209
  10. MESNA. [Suspect]
     Active Substance: MESNA
     Indication: PROPHYLAXIS
     Dosage: 125 MG
     Route: 042
     Dates: start: 20181207, end: 20181209
  11. SIMVASTATIN. [Concomitant]
     Active Substance: SIMVASTATIN
     Dosage: 10,MG,DAILY
     Route: 048
     Dates: start: 20180119
  12. MULTIVITAMINS [VITAMINS NOS] [Concomitant]
     Active Substance: VITAMINS
     Dosage: 1,OTHER,DAILY
     Route: 048
     Dates: start: 20190102
  13. OMEGA-3 FATTY ACIDS [Concomitant]
     Active Substance: OMEGA-3 FATTY ACIDS
     Dosage: 1000,MG,AS NECESSARY
     Route: 048
     Dates: start: 20100811
  14. PROCHLORPERAZINE. [Concomitant]
     Active Substance: PROCHLORPERAZINE
     Dosage: 10,MG,AS NECESSARY
     Route: 048
     Dates: start: 20181205
  15. BACLOFEN. [Concomitant]
     Active Substance: BACLOFEN
     Dosage: 10,MG,TWICE DAILY
     Route: 048
     Dates: start: 20180629
  16. SULFAMETHOXAZOLE AND TRIMETHOPRIM [Concomitant]
     Active Substance: SULFAMETHOXAZOLE\TRIMETHOPRIM
     Dosage: 80,MG,DAILY
     Route: 048
     Dates: start: 20181211
  17. FOLIC ACID. [Concomitant]
     Active Substance: FOLIC ACID
     Dosage: 400,UG,DAILY
     Route: 048
     Dates: start: 20190102

REACTIONS (3)
  - Aphasia [Recovered/Resolved]
  - Somnolence [Recovered/Resolved]
  - Breast cancer [Recovered/Resolved]

NARRATIVE: CASE EVENT DATE: 20181222
